FAERS Safety Report 17235507 (Version 2)
Quarter: 2020Q3

REPORT INFORMATION
  Report Type: Spontaneous
  Country: ES (occurrence: ES)
  Receive Date: 20200106
  Receipt Date: 20200717
  Transmission Date: 20201102
  Serious: Yes (Other)
  Sender: FDA-Public Use
  Company Number: ES-AUROBINDO-AUR-APL-2019-108401

PATIENT
  Age: 6 Year
  Sex: Female
  Weight: 16.5 kg

DRUGS (5)
  1. LEVETIRACETAM. [Suspect]
     Active Substance: LEVETIRACETAM
     Indication: EPILEPSY
     Dosage: 20 MILLIGRAM/KILOGRAM, DAILY, ORALLY IN TWO DOSES
     Route: 048
  2. HYDROCORTISONE. [Concomitant]
     Active Substance: HYDROCORTISONE
     Indication: PRODUCT USED FOR UNKNOWN INDICATION
     Dosage: 2.5 MILLIGRAM, 3 TIMES A DAY
     Route: 048
  3. DESMOPRESSIN [Concomitant]
     Active Substance: DESMOPRESSIN
     Indication: DIABETES INSIPIDUS
  4. DESMOPRESSIN [Concomitant]
     Active Substance: DESMOPRESSIN
     Indication: POLYURIA
     Dosage: 5 MICROGRAM, TWO TIMES A DAY, IF URINE OUTPUT WAS MORE THAN 50 ML PER HOUR
     Route: 045
  5. LEVOTHYROXINE. [Concomitant]
     Active Substance: LEVOTHYROXINE
     Indication: PRODUCT USED FOR UNKNOWN INDICATION
     Dosage: 62.5 MICROGRAM, ONCE A DAY
     Route: 048

REACTIONS (3)
  - Seizure [Unknown]
  - Urine output decreased [Recovered/Resolved]
  - Oliguria [Unknown]
